FAERS Safety Report 9909752 (Version 1)
Quarter: 2014Q1

REPORT INFORMATION
  Report Type: Spontaneous
  Country: US (occurrence: US)
  Receive Date: 20140219
  Receipt Date: 20140219
  Transmission Date: 20141002
  Serious: No
  Sender: FDA-Public Use
  Company Number: US-PFIZER INC-2014044878

PATIENT
  Age: 18 Year
  Sex: Female
  Weight: 72.56 kg

DRUGS (1)
  1. ADVIL MIGRAINE [Suspect]
     Indication: MIGRAINE
     Dosage: UNK

REACTIONS (2)
  - Overdose [Unknown]
  - Vomiting [Unknown]
